FAERS Safety Report 14189734 (Version 6)
Quarter: 2018Q3

REPORT INFORMATION
  Report Type: Report from Study
  Country: None (occurrence: US)
  Receive Date: 20171115
  Receipt Date: 20180811
  Transmission Date: 20181010
  Serious: Yes (Other)
  Sender: FDA-Public Use
  Company Number: US-ABBVIE-17K-163-1975427-00

PATIENT
  Sex: Male
  Weight: 139.83 kg

DRUGS (2)
  1. HUMIRA [Suspect]
     Active Substance: ADALIMUMAB
     Indication: RHEUMATOID ARTHRITIS
     Route: 058
     Dates: start: 20170508, end: 20170620
  2. HUMIRA [Suspect]
     Active Substance: ADALIMUMAB
     Indication: PSORIATIC ARTHROPATHY
     Route: 058
     Dates: start: 20170726

REACTIONS (16)
  - Gait disturbance [Unknown]
  - Myosclerosis [Unknown]
  - Peripheral swelling [Unknown]
  - Bursitis [Recovered/Resolved]
  - Loss of personal independence in daily activities [Unknown]
  - Post procedural swelling [Unknown]
  - Dysstasia [Unknown]
  - Psoriasis [Unknown]
  - Dyspnoea [Unknown]
  - Fatigue [Not Recovered/Not Resolved]
  - Joint range of motion decreased [Unknown]
  - Meniscus injury [Unknown]
  - Injection site pain [Unknown]
  - Mobility decreased [Unknown]
  - Pain in extremity [Unknown]
  - Drug effect decreased [Unknown]

NARRATIVE: CASE EVENT DATE: 2017
